FAERS Safety Report 17039681 (Version 14)
Quarter: 2021Q3

REPORT INFORMATION
  Report Type: Report from Study
  Country: US (occurrence: US)
  Receive Date: 20191116
  Receipt Date: 20210930
  Transmission Date: 20211014
  Serious: Yes (Hospitalization, Other)
  Sender: FDA-Public Use
  Company Number: NVSC2019US036726

PATIENT
  Age: 61 Year
  Sex: Female
  Weight: 40.3 kg

DRUGS (21)
  1. PROVENTIL [Concomitant]
     Active Substance: ALBUTEROL
     Indication: PRODUCT USED FOR UNKNOWN INDICATION
     Dosage: 1 DF, BID (2.5 MG/3 ML) 0.083 %
     Route: 055
  2. AMIKACIN. [Concomitant]
     Active Substance: AMIKACIN
     Indication: PRODUCT USED FOR UNKNOWN INDICATION
     Dosage: 590 MG, QD (590 MG/8.4 ML)
     Route: 055
  3. ZITHROMAX [Concomitant]
     Active Substance: AZITHROMYCIN DIHYDRATE
     Indication: PRODUCT USED FOR UNKNOWN INDICATION
     Dosage: 250 MG, QD
     Route: 048
  4. VITAMIN D3 [Concomitant]
     Active Substance: CHOLECALCIFEROL
     Indication: PRODUCT USED FOR UNKNOWN INDICATION
     Dosage: 5000 U, QD
     Route: 048
  5. LAMPRENE [Suspect]
     Active Substance: CLOFAZIMINE
     Indication: MYCOBACTERIUM ABSCESSUS INFECTION
     Dosage: 100 MG, QD
     Route: 048
     Dates: start: 20170804, end: 202006
  6. LAMPRENE [Suspect]
     Active Substance: CLOFAZIMINE
     Indication: CYSTIC FIBROSIS
  7. ISOVUE 370 [Concomitant]
     Active Substance: IOPAMIDOL
     Indication: PRODUCT USED FOR UNKNOWN INDICATION
     Dosage: 51 ML
     Route: 042
     Dates: start: 20191027
  8. ALBUTEROL. [Concomitant]
     Active Substance: ALBUTEROL
     Indication: PRODUCT USED FOR UNKNOWN INDICATION
     Dosage: 1 DF (2.5MG/3ML), BID
     Route: 055
     Dates: start: 20191230
  9. LAMPRENE [Suspect]
     Active Substance: CLOFAZIMINE
     Indication: LUNG DISORDER
     Dosage: 50 MG, QD
     Route: 048
     Dates: start: 20200717
  10. BEDAQUILINE [Concomitant]
     Active Substance: BEDAQUILINE
     Indication: PRODUCT USED FOR UNKNOWN INDICATION
     Dosage: 400 MG, QD
     Route: 048
  11. PROBIOTIC [Concomitant]
     Active Substance: PROBIOTICS NOS
     Indication: PRODUCT USED FOR UNKNOWN INDICATION
     Dosage: 1 DF, QD
     Route: 048
  12. MINOCYCLINE [Concomitant]
     Active Substance: MINOCYCLINE HYDROCHLORIDE
     Dosage: UNK
     Route: 065
     Dates: start: 20200107, end: 20200521
  13. SODIUM CHLORIDE. [Concomitant]
     Active Substance: SODIUM CHLORIDE
     Indication: PRODUCT USED FOR UNKNOWN INDICATION
     Dosage: 4 ML, BID
     Route: 055
     Dates: start: 20200515
  14. ONDANSETRON ODT DRLA [Concomitant]
     Active Substance: ONDANSETRON
     Indication: PRODUCT USED FOR UNKNOWN INDICATION
     Dosage: 4 MG, PRN
     Route: 048
     Dates: start: 20200612
  15. LAMPRENE [Suspect]
     Active Substance: CLOFAZIMINE
     Indication: MYCOBACTERIUM AVIUM COMPLEX INFECTION
  16. BEDAQUILINE [Concomitant]
     Active Substance: BEDAQUILINE
     Dosage: UNK DOSE INCREASED
     Route: 065
     Dates: start: 20200604, end: 20200617
  17. PULMOZYME [Concomitant]
     Active Substance: DORNASE ALFA
     Indication: PRODUCT USED FOR UNKNOWN INDICATION
     Dosage: 2.5 MG, BID (1 MG/ML SOLUTION)
     Route: 055
     Dates: start: 20200401
  18. BEDAQUILINE [Concomitant]
     Active Substance: BEDAQUILINE
     Dosage: 100 MG, TIW (2 TABS 3 TIMES PER WEEK)
     Route: 048
     Dates: start: 20200616
  19. BEDAQUILINE [Concomitant]
     Active Substance: BEDAQUILINE
     Dosage: UNK
     Route: 065
     Dates: start: 20200617
  20. MINOCYCLINE [Concomitant]
     Active Substance: MINOCYCLINE HYDROCHLORIDE
     Indication: PRODUCT USED FOR UNKNOWN INDICATION
     Dosage: UNK
     Route: 065
     Dates: start: 201911, end: 20191126
  21. AQUADEKS [Concomitant]
     Active Substance: MINERALS\VITAMINS
     Indication: PRODUCT USED FOR UNKNOWN INDICATION
     Dosage: 2 DF
     Route: 048
     Dates: start: 20210126

REACTIONS (37)
  - Gamma-glutamyltransferase increased [Recovering/Resolving]
  - Portal fibrosis [Recovered/Resolved]
  - Infective pulmonary exacerbation of cystic fibrosis [Recovered/Resolved with Sequelae]
  - Lung opacity [Unknown]
  - Quality of life decreased [Unknown]
  - Rhinorrhoea [Not Recovered/Not Resolved]
  - Exfoliative rash [Not Recovered/Not Resolved]
  - Productive cough [Recovering/Resolving]
  - Vomiting [Unknown]
  - Lung infiltration [Unknown]
  - Blood alkaline phosphatase increased [Recovering/Resolving]
  - Haematocrit decreased [Unknown]
  - Pneumonia [Not Recovered/Not Resolved]
  - Chest pain [Not Recovered/Not Resolved]
  - Haemoptysis [Not Recovered/Not Resolved]
  - Hepatic steatosis [Recovered/Resolved]
  - Embolism venous [Not Recovered/Not Resolved]
  - Pulmonary embolism [Recovering/Resolving]
  - Fall [Unknown]
  - Constipation [Not Recovered/Not Resolved]
  - Rash pruritic [Not Recovered/Not Resolved]
  - Tachycardia [Recovering/Resolving]
  - Cholangitis [Recovered/Resolved]
  - White blood cell count increased [Unknown]
  - Infective pulmonary exacerbation of cystic fibrosis [Recovering/Resolving]
  - Pleuritic pain [Not Recovered/Not Resolved]
  - Nausea [Not Recovered/Not Resolved]
  - Cough [Not Recovered/Not Resolved]
  - Blood pressure decreased [Unknown]
  - Arthralgia [Not Recovered/Not Resolved]
  - Cholestasis [Recovered/Resolved]
  - Pneumonia [Not Recovered/Not Resolved]
  - Hepatic enzyme increased [Recovering/Resolving]
  - Asthenia [Unknown]
  - Dyspnoea [Not Recovered/Not Resolved]
  - Myalgia [Not Recovered/Not Resolved]
  - Skin laceration [Recovering/Resolving]

NARRATIVE: CASE EVENT DATE: 20191027
